FAERS Safety Report 5047374-9 (Version None)
Quarter: 2006Q3

REPORT INFORMATION
  Report Type: 
  Country: None (occurrence: None)
  Receive Date: 20060710
  Receipt Date: 20060710
  Transmission Date: 20061208
  Serious: No
  Sender: FDA-Public Use
  Company Number: None

PATIENT
  Sex: Female
  Weight: 55.3388 kg

DRUGS (2)
  1. GAMMAGARD LIQUID [Suspect]
     Indication: MULTIPLE SCLEROSIS
     Dosage: 20 GM 4 DAYS MONTHLY IV
     Route: 042
     Dates: start: 20060702, end: 20060705
  2. GAMMAGARD LIQUID [Suspect]
     Indication: MULTIPLE SCLEROSIS
     Dosage: 7.5  MG 4 DAY MONTHLY IV
     Route: 042
     Dates: start: 20060702, end: 20060705

REACTIONS (2)
  - RASH [None]
  - URTICARIA [None]
